FAERS Safety Report 9032123 (Version 1)
Quarter: 2013Q1

REPORT INFORMATION
  Report Type: Report from Study
  Country: CA (occurrence: CA)
  Receive Date: 20130122
  Receipt Date: 20130122
  Transmission Date: 20140127
  Serious: Yes (Hospitalization)
  Sender: FDA-Public Use
  Company Number: CA-JNJFOC-20130106151

PATIENT
  Age: 65 Year
  Sex: Female
  Weight: 52.5 kg

DRUGS (1)
  1. REMICADE [Suspect]
     Indication: CROHN^S DISEASE
     Route: 042
     Dates: start: 20120423, end: 20130108

REACTIONS (8)
  - Renal failure [Recovered/Resolved]
  - Contusion [Unknown]
  - Dehydration [Recovered/Resolved]
  - Fall [Unknown]
  - Tooth fracture [Unknown]
  - Urinary tract infection [Recovered/Resolved]
  - Blood potassium increased [Recovered/Resolved]
  - Blood cortisol abnormal [Recovered/Resolved]
